FAERS Safety Report 26177837 (Version 1)
Quarter: 2025Q4

REPORT INFORMATION
  Report Type: Spontaneous
  Country: US (occurrence: US)
  Receive Date: 20251219
  Receipt Date: 20251219
  Transmission Date: 20260117
  Serious: Yes (Hospitalization, Other)
  Sender: PROCTER AND GAMBLE
  Company Number: US-MLMSERVICE-20251204-PI739534-00029-1

PATIENT
  Age: 49 Year
  Sex: Female

DRUGS (1)
  1. ACETAMINOPHEN [Suspect]
     Active Substance: ACETAMINOPHEN
     Dosage: REGULAR USE

REACTIONS (14)
  - Metabolic acidosis [Recovering/Resolving]
  - Pyroglutamic acidosis [Recovering/Resolving]
  - Dyspnoea [Unknown]
  - Mental status changes [Unknown]
  - Anion gap increased [Unknown]
  - Blood pH increased [Unknown]
  - Blood bicarbonate decreased [Unknown]
  - Blood creatinine increased [Unknown]
  - Blood sodium decreased [Unknown]
  - Blood potassium increased [Unknown]
  - Blood phosphorus increased [Unknown]
  - Blood urea increased [Unknown]
  - Osmolar gap increased [Unknown]
  - Pyroglutamate increased [Recovering/Resolving]
